FAERS Safety Report 6649344-3 (Version None)
Quarter: 2010Q1

REPORT INFORMATION
  Report Type: 
  Country: None (occurrence: None)
  Receive Date: 20100322
  Receipt Date: 20100308
  Transmission Date: 20100710
  Serious: Yes (Hospitalization)
  Sender: FDA-Public Use
  Company Number: 2010AL001400

PATIENT
  Age: 42 Year
  Sex: Female
  Weight: 50 kg

DRUGS (3)
  1. PAREGORIC LIQUID (MORPHINE) [Suspect]
  2. FTY720 (FINGOLIMOD) [Suspect]
  3. VFTY720 [Concomitant]

REACTIONS (2)
  - ABDOMINAL HERNIA [None]
  - DRUG HYPERSENSITIVITY [None]
